FAERS Safety Report 9524957 (Version 1)
Quarter: 2013Q3

REPORT INFORMATION
  Report Type: Spontaneous
  Country: US (occurrence: None)
  Receive Date: 20130912
  Receipt Date: 20130912
  Transmission Date: 20140515
  Serious: Yes (Other)
  Sender: FDA-Public Use
  Company Number: AUR-APL-2013-07671

PATIENT
  Sex: Male
  Weight: 78.9 kg

DRUGS (3)
  1. LISINOPRIL (LISINOPRIL) [Suspect]
     Indication: RENAL DISORDER
  2. CENTRUM SILVER [Suspect]
     Indication: ROUTINE HEALTH MAINTENANCE
  3. CRESTOR [Concomitant]

REACTIONS (2)
  - Blood copper increased [None]
  - Off label use [None]
